FAERS Safety Report 23398251 (Version 1)
Quarter: 2024Q1

REPORT INFORMATION
  Report Type: Spontaneous
  Country: US (occurrence: US)
  Receive Date: 20240112
  Receipt Date: 20240112
  Transmission Date: 20240410
  Serious: No
  Sender: FDA-Public Use
  Company Number: US-PFIZER INC-202400005569

PATIENT
  Age: 65 Year
  Sex: Male

DRUGS (2)
  1. PAXLOVID [Suspect]
     Active Substance: NIRMATRELVIR\RITONAVIR
     Indication: COVID-19 treatment
     Dosage: UNK
     Dates: start: 20231221, end: 20231226
  2. MAGNESIUM CITRATE [Concomitant]
     Active Substance: MAGNESIUM CITRATE
     Dates: start: 202309, end: 202401

REACTIONS (2)
  - Disease recurrence [Recovering/Resolving]
  - COVID-19 [Recovering/Resolving]

NARRATIVE: CASE EVENT DATE: 20240103
